FAERS Safety Report 19585399 (Version 3)
Quarter: 2021Q4

REPORT INFORMATION
  Report Type: Spontaneous
  Country: US (occurrence: US)
  Receive Date: 20210721
  Receipt Date: 20211110
  Transmission Date: 20220304
  Serious: Yes (Hospitalization)
  Sender: FDA-Public Use
  Company Number: US-AMGEN-USASP2021109883

PATIENT
  Age: 64 Year
  Sex: Female

DRUGS (3)
  1. ENBREL [Suspect]
     Active Substance: ETANERCEPT
     Indication: Arthritis
     Dosage: UNK
     Route: 065
     Dates: start: 2021, end: 202105
  2. ENBREL [Suspect]
     Active Substance: ETANERCEPT
     Dosage: 50 MILLIGRAM, QWK
     Route: 065
     Dates: start: 202105
  3. ENBREL [Suspect]
     Active Substance: ETANERCEPT
     Dosage: 50 MILLIGRAM, QWK
     Route: 065

REACTIONS (11)
  - Gallbladder operation [Unknown]
  - Shoulder arthroplasty [Unknown]
  - Joint arthroplasty [Unknown]
  - Tendon operation [Unknown]
  - Blood pressure fluctuation [Unknown]
  - Product prescribing issue [Unknown]
  - Wrong device used [Unknown]
  - Wrong technique in product usage process [Unknown]
  - Product dose omission issue [Unknown]
  - Injection site pain [Unknown]
  - Device use issue [Unknown]

NARRATIVE: CASE EVENT DATE: 20210101
